FAERS Safety Report 6109071-8 (Version None)
Quarter: 2009Q1

REPORT INFORMATION
  Report Type: 
  Country: None (occurrence: None)
  Receive Date: 20090310
  Receipt Date: 20090302
  Transmission Date: 20090719
  Serious: Yes (Disabling)
  Sender: FDA-Public Use
  Company Number: BR-ELI_LILLY_AND_COMPANY-BR200901004849

PATIENT
  Sex: Female

DRUGS (5)
  1. FORTEO [Suspect]
     Indication: OSTEOPOROSIS
     Dosage: 20 UG, UNKNOWN
     Route: 058
     Dates: start: 20081202
  2. GLUCOBAY [Concomitant]
     Indication: DIABETES MELLITUS
     Dosage: UNK, 3/D
     Route: 065
  3. METFORMINA [Concomitant]
     Indication: DIABETES MELLITUS
     Dosage: UNK, 3/D
     Route: 065
  4. ASPIRIN [Concomitant]
     Dosage: UNK, QOD
     Route: 065
  5. VITAMIN B-12 [Concomitant]
     Dosage: UNK, AS NEEDED
     Route: 065

REACTIONS (16)
  - ABDOMINAL DISTENSION [None]
  - ABDOMINAL PAIN [None]
  - BLOOD PRESSURE DECREASED [None]
  - FALL [None]
  - GAIT DISTURBANCE [None]
  - INJECTION SITE PAIN [None]
  - MUSCULAR WEAKNESS [None]
  - NERVOUSNESS [None]
  - NEURALGIA [None]
  - PAIN [None]
  - PAIN IN EXTREMITY [None]
  - RENAL PAIN [None]
  - SOMNOLENCE [None]
  - TRAUMATIC HAEMATOMA [None]
  - TREMOR [None]
  - WEIGHT DECREASED [None]
